FAERS Safety Report 9706017 (Version 3)
Quarter: 2013Q4

REPORT INFORMATION
  Report Type: Spontaneous
  Country: US (occurrence: US)
  Receive Date: 20131122
  Receipt Date: 20131231
  Transmission Date: 20140711
  Serious: Yes (Other)
  Sender: FDA-Public Use
  Company Number: US-AMGEN-USASP2013031144

PATIENT
  Age: 31 Year
  Sex: Female
  Weight: 79.36 kg

DRUGS (4)
  1. ENBREL [Suspect]
     Indication: ANKYLOSING SPONDYLITIS
     Dosage: 50 MG, QWK
     Route: 058
     Dates: start: 201209
  2. PRENATAL VITAMINS                  /07499601/ [Concomitant]
     Indication: PREGNANCY
     Dosage: UNK, 4 DAYS
     Route: 048
     Dates: start: 201212
  3. TRIAMCINOLONE                      /00031902/ [Concomitant]
     Indication: RASH
     Dosage: UNK, BID
     Dates: start: 201211
  4. FEMARA [Concomitant]
     Dosage: UNK

REACTIONS (2)
  - Subchorionic haemorrhage [Unknown]
  - Pain [Unknown]
